FAERS Safety Report 4695473-3 (Version None)
Quarter: 2005Q2

REPORT INFORMATION
  Report Type: 
  Country: None (occurrence: None)
  Receive Date: 20050620
  Receipt Date: 20050620
  Transmission Date: 20051028
  Serious: Yes (Death)
  Sender: FDA-Public Use
  Company Number: None

PATIENT
  Age: 50 Year
  Sex: Male
  Weight: 78.4723 kg

DRUGS (2)
  1. COUMADIN [Suspect]
     Indication: STENT PLACEMENT
  2. PLAVIX [Suspect]

REACTIONS (1)
  - HAEMORRHAGE [None]
